FAERS Safety Report 23053807 (Version 1)
Quarter: 2023Q4

REPORT INFORMATION
  Report Type: Spontaneous
  Country: SK (occurrence: SK)
  Receive Date: 20231011
  Receipt Date: 20231011
  Transmission Date: 20240110
  Serious: Yes (Other)
  Sender: FDA-Public Use
  Company Number: None

PATIENT
  Age: 20 Year
  Sex: Female

DRUGS (7)
  1. LEVETIRACETAM [Suspect]
     Active Substance: LEVETIRACETAM
     Indication: Partial seizures
     Dosage: UNK
  2. LACOSAMIDE [Suspect]
     Active Substance: LACOSAMIDE
     Indication: Partial seizures
     Dosage: UNK
  3. CENOBAMATE [Interacting]
     Active Substance: CENOBAMATE
     Indication: Depression
     Dosage: 100 MILLIGRAM, DAILY
     Dates: start: 202208
  4. CENOBAMATE [Interacting]
     Active Substance: CENOBAMATE
     Indication: Partial seizures
     Dosage: 150 MILLIGRAM,DAILY
  5. CENOBAMATE [Interacting]
     Active Substance: CENOBAMATE
     Dosage: 200 MILLIGRAM,DAILY
  6. LAMOTRIGINE [Interacting]
     Active Substance: LAMOTRIGINE
     Indication: Partial seizures
     Dosage: UNK
  7. ESCITALOPRAM [Concomitant]
     Active Substance: ESCITALOPRAM OXALATE
     Indication: Depression
     Dosage: UNK

REACTIONS (4)
  - Depression suicidal [Unknown]
  - Drug level decreased [Unknown]
  - Drug interaction [Unknown]
  - Therapeutic product effect incomplete [Unknown]
